FAERS Safety Report 9470439 (Version 1)
Quarter: 2013Q3

REPORT INFORMATION
  Report Type: Spontaneous
  Country: BR (occurrence: BR)
  Receive Date: 20130822
  Receipt Date: 20130822
  Transmission Date: 20140515
  Serious: Yes (Hospitalization)
  Sender: FDA-Public Use
  Company Number: BR-ASTRAZENECA-2013SE64505

PATIENT
  Age: 60 Year
  Sex: Male
  Weight: 105 kg

DRUGS (6)
  1. ATENOLOL [Suspect]
     Indication: HYPERTENSION
     Route: 065
     Dates: start: 2006
  2. CRESTOR [Suspect]
     Indication: BLOOD CHOLESTEROL INCREASED
     Route: 048
     Dates: start: 2013
  3. ARADOIS [Concomitant]
     Indication: HYPERTENSION
     Dates: start: 2006
  4. PRESSAT [Concomitant]
     Indication: HYPERTENSION
     Dates: start: 2006
  5. METFORMIN [Concomitant]
     Indication: DIABETES MELLITUS
     Dates: start: 2006
  6. RAMIPRIL [Concomitant]
     Indication: HYPERTENSION
     Dates: start: 2006

REACTIONS (1)
  - Coronary artery occlusion [Recovered/Resolved]
